FAERS Safety Report 8009052-3 (Version None)
Quarter: 2011Q4

REPORT INFORMATION
  Report Type: 
  Country: None (occurrence: None)
  Receive Date: 20111227
  Receipt Date: 20111212
  Transmission Date: 20120403
  Serious: Yes (Hospitalization)
  Sender: FDA-Public Use
  Company Number: IT-ARROW GEN-2011-22100

PATIENT
  Age: 40 Year
  Sex: Male
  Weight: 69.5 kg

DRUGS (14)
  1. RISPERIDONE [Suspect]
     Indication: SUICIDAL IDEATION
     Dosage: 4 MG, DAILY (10 MONTHS AFTER FIRST ADMISSION DISCHARGE
     Route: 065
  2. RISPERIDONE [Suspect]
     Indication: FLAT AFFECT
     Dosage: 6 MG, QHS UPON DISCHARGE OF 2ND ADMISSION
     Route: 065
  3. CLOZAPINE [Suspect]
     Indication: AKINESIA
  4. RISPERIDONE [Suspect]
     Indication: HOMICIDAL IDEATION
  5. CLOZAPINE [Suspect]
     Indication: SCHIZOAFFECTIVE DISORDER BIPOLAR TYPE
  6. CLOZAPINE [Suspect]
     Indication: AKATHISIA
  7. CLOZAPINE [Suspect]
     Indication: HOMICIDAL IDEATION
  8. RISPERIDONE [Suspect]
     Indication: AKATHISIA
  9. CLOZAPINE [Suspect]
     Indication: FLAT AFFECT
  10. RISPERIDONE [Suspect]
     Indication: SCHIZOAFFECTIVE DISORDER BIPOLAR TYPE
     Dosage: 2MG FIRST 10 DAYS OF CLOZAPINE TITRATION
     Route: 065
  11. RISPERIDONE [Suspect]
     Indication: INTENTIONAL SELF-INJURY
  12. RISPERIDONE [Suspect]
     Indication: AKINESIA
  13. CLOZAPINE [Suspect]
     Indication: SUICIDAL IDEATION
  14. CLOZAPINE [Suspect]
     Indication: INTENTIONAL SELF-INJURY

REACTIONS (10)
  - ABDOMINAL DISTENSION [None]
  - PANCREATITIS [None]
  - CHOLELITHIASIS [None]
  - HEPATOMEGALY [None]
  - CONSTIPATION [None]
  - TACHYCARDIA [None]
  - SALIVARY HYPERSECRETION [None]
  - GRANULOCYTOSIS [None]
  - FULL BLOOD COUNT ABNORMAL [None]
  - ABDOMINAL PAIN [None]
